FAERS Safety Report 24658847 (Version 1)
Quarter: 2024Q4

REPORT INFORMATION
  Report Type: Report from Study
  Country: US (occurrence: US)
  Receive Date: 20241125
  Receipt Date: 20241125
  Transmission Date: 20250114
  Serious: No
  Sender: SANDOZ
  Company Number: US-SANDOZ-SDZ2024US097558

PATIENT
  Sex: Male

DRUGS (2)
  1. OMNITROPE [Suspect]
     Active Substance: SOMATROPIN
     Indication: Small for dates baby
     Dosage: 1.05 MG, QD, 5 MG / 1.5 ML
     Route: 058
     Dates: start: 202410
  2. OMNITROPE [Suspect]
     Active Substance: SOMATROPIN
     Indication: Small for dates baby
     Dosage: 1.05 MG, QD, 5 MG / 1.5 ML
     Route: 058
     Dates: start: 202410

REACTIONS (2)
  - Circumstance or information capable of leading to medication error [Unknown]
  - Manufacturing issue [Unknown]
